FAERS Safety Report 6222646-0 (Version None)
Quarter: 2009Q2

REPORT INFORMATION
  Report Type: 
  Country: None (occurrence: None)
  Receive Date: 20090609
  Receipt Date: 20090609
  Transmission Date: 20091009
  Serious: Yes (Disabling, Other)
  Sender: FDA-Public Use
  Company Number: None

PATIENT
  Age: 74 Year
  Sex: Female
  Weight: 46.2669 kg

DRUGS (1)
  1. BONIVA [Suspect]
     Indication: OSTEOPOROSIS
     Dates: start: 20070102, end: 20090601

REACTIONS (3)
  - LOOSE TOOTH [None]
  - MENTAL DISORDER [None]
  - OSTEONECROSIS [None]
